FAERS Safety Report 25341842 (Version 1)
Quarter: 2025Q2

REPORT INFORMATION
  Report Type: Report from Study
  Country: US (occurrence: US)
  Receive Date: 20250521
  Receipt Date: 20250521
  Transmission Date: 20250716
  Serious: No
  Sender: SUNOVION
  Company Number: US-SUMITOMO PHARMA SWITZERLAND GMBH-2025SPA005181

PATIENT

DRUGS (13)
  1. ORGOVYX [Suspect]
     Active Substance: RELUGOLIX
     Indication: Prostate cancer
     Dosage: 360 MG, SINGLE
     Route: 048
     Dates: start: 2023, end: 2023
  2. ORGOVYX [Suspect]
     Active Substance: RELUGOLIX
     Dosage: 120 MG, QD
     Route: 048
     Dates: start: 2023
  3. LISINOPRIL [Suspect]
     Active Substance: LISINOPRIL
     Route: 065
  4. ABIRATERONE ACETATE [Concomitant]
     Active Substance: ABIRATERONE ACETATE
     Route: 065
  5. ASPIRIN [Concomitant]
     Active Substance: ASPIRIN
     Route: 065
  6. ATORVASTATIN [Concomitant]
     Active Substance: ATORVASTATIN
     Route: 065
  7. CALCIUM [Concomitant]
     Active Substance: CALCIUM
     Route: 065
  8. GLUCOSAMINE [Concomitant]
     Active Substance: GLUCOSAMINE
     Route: 065
  9. JAKAFI [Concomitant]
     Active Substance: RUXOLITINIB
     Route: 065
  10. OMEPRAZOLE [Concomitant]
     Active Substance: OMEPRAZOLE
     Route: 065
  11. POTASSIUM [Concomitant]
     Active Substance: POTASSIUM
     Route: 065
  12. SILDENAFIL [Concomitant]
     Active Substance: SILDENAFIL
     Route: 065
  13. VALSARTAN [Concomitant]
     Active Substance: VALSARTAN
     Route: 065

REACTIONS (4)
  - Blister [Unknown]
  - Rash pruritic [Unknown]
  - Cough [Recovered/Resolved]
  - Mood swings [Unknown]
